FAERS Safety Report 16160127 (Version 3)
Quarter: 2019Q2

REPORT INFORMATION
  Report Type: Spontaneous
  Country: FR (occurrence: FR)
  Receive Date: 20190404
  Receipt Date: 20190520
  Transmission Date: 20190711
  Serious: No
  Sender: FDA-Public Use
  Company Number: FR-ALLERGAN-1914573US

PATIENT
  Sex: Male
  Weight: 78.5 kg

DRUGS (1)
  1. NO SUSPECT ALLERGAN PRODUCT [Suspect]
     Active Substance: UNSPECIFIED INGREDIENT
     Indication: PRODUCT USED FOR UNKNOWN INDICATION
     Dosage: UNK
     Route: 065

REACTIONS (1)
  - No adverse event [Unknown]
